FAERS Safety Report 11598027 (Version 1)
Quarter: 2015Q3

REPORT INFORMATION
  Report Type: Spontaneous
  Country: US (occurrence: US)
  Receive Date: 20150916
  Receipt Date: 20150916
  Transmission Date: 20151125
  Serious: No
  Sender: FDA-Public Use
  Company Number: US-ELI_LILLY_AND_COMPANY-US200801000472

PATIENT
  Sex: Female

DRUGS (2)
  1. FORTEO [Suspect]
     Active Substance: TERIPARATIDE
     Dosage: UNK, UNK
     Dates: start: 200701
  2. COUMADIN [Concomitant]
     Active Substance: WARFARIN SODIUM

REACTIONS (5)
  - Swelling [Recovering/Resolving]
  - Fall [Recovering/Resolving]
  - Injection site haemorrhage [Not Recovered/Not Resolved]
  - Headache [Recovering/Resolving]
  - Decreased activity [Recovering/Resolving]

NARRATIVE: CASE EVENT DATE: 200708
